FAERS Safety Report 24259751 (Version 1)
Quarter: 2024Q3

REPORT INFORMATION
  Report Type: Spontaneous
  Country: US (occurrence: US)
  Receive Date: 20240828
  Receipt Date: 20240828
  Transmission Date: 20241016
  Serious: No
  Sender: JOHNSON AND JOHNSON
  Company Number: US-JNJFOC-20240827923

PATIENT
  Age: 76 Year
  Sex: Male

DRUGS (10)
  1. TYLENOL [Suspect]
     Active Substance: ACETAMINOPHEN
     Indication: Prophylaxis
     Dosage: NOT PROVIDED. NOT PROVIDED.
     Route: 065
  2. OFEV [Concomitant]
     Active Substance: NINTEDANIB
     Indication: Idiopathic pulmonary fibrosis
     Route: 065
     Dates: start: 20240223, end: 20240430
  3. OFEV [Concomitant]
     Active Substance: NINTEDANIB
     Route: 065
     Dates: start: 20240223, end: 20240430
  4. OFEV [Concomitant]
     Active Substance: NINTEDANIB
     Route: 065
  5. PIRFENIDONE [Concomitant]
     Active Substance: PIRFENIDONE
     Indication: Product used for unknown indication
     Route: 065
  6. OREGANO [Concomitant]
     Active Substance: OREGANO
     Indication: Product used for unknown indication
     Route: 065
  7. MULLEIN EXTRACT [Concomitant]
     Indication: Product used for unknown indication
     Route: 065
  8. ASPIRIN [Concomitant]
     Active Substance: ASPIRIN
     Indication: Product used for unknown indication
     Route: 065
  9. LIQUID VITAMIN B12 [Concomitant]
     Indication: Balance disorder
     Route: 065
  10. LIQUID VITAMIN B12 [Concomitant]
     Indication: Fatigue

REACTIONS (1)
  - Product use in unapproved indication [Unknown]
